FAERS Safety Report 15774515 (Version 2)
Quarter: 2019Q1

REPORT INFORMATION
  Report Type: Spontaneous
  Country: US (occurrence: US)
  Receive Date: 20181229
  Receipt Date: 20190131
  Transmission Date: 20190417
  Serious: No
  Sender: FDA-Public Use
  Company Number: US-GLAXOSMITHKLINE-US2018GSK225629

PATIENT
  Sex: Female

DRUGS (1)
  1. VENTOLIN HFA [Suspect]
     Active Substance: ALBUTEROL SULFATE
     Indication: ASTHMA
     Route: 055

REACTIONS (7)
  - Intentional product use issue [Unknown]
  - Product dose omission [Unknown]
  - Wrong technique in product usage process [Unknown]
  - Infection [Unknown]
  - Respiratory disorder [Unknown]
  - Dyspnoea [Unknown]
  - Product complaint [Unknown]
